FAERS Safety Report 6663285-7 (Version None)
Quarter: 2010Q2

REPORT INFORMATION
  Report Type: 
  Country: None (occurrence: None)
  Receive Date: 20100401
  Receipt Date: 20100310
  Transmission Date: 20101027
  Serious: Yes (Other)
  Sender: FDA-Public Use
  Company Number: DK-BAYER-201015336GPV

PATIENT
  Age: 51 Year
  Sex: Female
  Weight: 86 kg

DRUGS (5)
  1. ALEMTUZUMAB [Suspect]
     Indication: MULTIPLE SCLEROSIS
     Route: 042
     Dates: start: 20090202, end: 20090206
  2. ALEMTUZUMAB [Suspect]
     Route: 042
     Dates: start: 20100201, end: 20100203
  3. METHYLPREDNISOLONE [Concomitant]
     Dates: start: 20090202, end: 20090204
  4. METHYLPREDNISOLONE [Concomitant]
     Dates: start: 20100201, end: 20100203
  5. AVONEX [Concomitant]
     Indication: MULTIPLE SCLEROSIS
     Route: 030
     Dates: start: 20081204, end: 20081219

REACTIONS (2)
  - HYPOTHYROIDISM [None]
  - OEDEMA PERIPHERAL [None]
